FAERS Safety Report 19349459 (Version 1)
Quarter: 2021Q2

REPORT INFORMATION
  Report Type: Spontaneous
  Country: US (occurrence: US)
  Receive Date: 20210531
  Receipt Date: 20210531
  Transmission Date: 20210717
  Serious: Yes (Other)
  Sender: FDA-Public Use
  Company Number: None

PATIENT
  Age: 42 Year
  Sex: Female
  Weight: 85.5 kg

DRUGS (20)
  1. SUMATRIPTAN. [Concomitant]
     Active Substance: SUMATRIPTAN
  2. CALCIUM [Concomitant]
     Active Substance: CALCIUM
  3. VITAMIN D [Concomitant]
     Active Substance: VITAMIN D NOS
  4. PEPTO?BISMOL [Concomitant]
     Active Substance: BISMUTH SUBSALICYLATE
  5. FEXOFENADINE [Concomitant]
     Active Substance: FEXOFENADINE HYDROCHLORIDE
  6. FLONASE [Concomitant]
     Active Substance: FLUTICASONE PROPIONATE
  7. AJOVY [Suspect]
     Active Substance: FREMANEZUMAB-VFRM
     Indication: MIGRAINE
     Dosage: ?          OTHER STRENGTH:MG/ML;QUANTITY:1 INJECTION(S);OTHER FREQUENCY:MONTHLY;?
     Route: 058
     Dates: start: 20190311, end: 20190511
  8. VALERIAN [Concomitant]
     Active Substance: VALERIAN
  9. FAMOTIDINE. [Concomitant]
     Active Substance: FAMOTIDINE
  10. GABAPENTIN. [Concomitant]
     Active Substance: GABAPENTIN
  11. NASONEX [Concomitant]
     Active Substance: MOMETASONE FUROATE
  12. KAVA ROOT [Concomitant]
  13. XIIDRA [Concomitant]
     Active Substance: LIFITEGRAST
  14. FISH OIL [Concomitant]
     Active Substance: FISH OIL
  15. LAVENDER OIL [Concomitant]
     Active Substance: LAVENDER OIL
  16. CBD GUMMIES [Concomitant]
     Active Substance: CANNABIDIOL
  17. LEVOTHYROXINE. [Concomitant]
     Active Substance: LEVOTHYROXINE
  18. VIORELE [Concomitant]
     Active Substance: DESOGESTREL\ETHINYL ESTRADIOL
  19. MELATONIN [Concomitant]
     Active Substance: MELATONIN
  20. TYLENOL [Concomitant]
     Active Substance: ACETAMINOPHEN

REACTIONS (2)
  - Insomnia [None]
  - Nausea [None]

NARRATIVE: CASE EVENT DATE: 20190423
